FAERS Safety Report 8384953-5 (Version None)
Quarter: 2012Q2

REPORT INFORMATION
  Report Type: 
  Country: None (occurrence: None)
  Receive Date: 20120524
  Receipt Date: 20120522
  Transmission Date: 20120825
  Serious: Yes (Other)
  Sender: FDA-Public Use
  Company Number: PHHY2011DK111699

PATIENT
  Sex: Male
  Weight: 130 kg

DRUGS (14)
  1. SIMVACOP [Concomitant]
     Indication: HYPERCHOLESTEROLAEMIA
     Dosage: 20 MG, QD
     Route: 048
     Dates: start: 20070828
  2. KININ ^DAK^ [Concomitant]
     Indication: MUSCLE SPASMS
     Dosage: 100 MG, QD
     Route: 048
     Dates: start: 20100817
  3. TRAMADOL HCL [Concomitant]
     Indication: PAIN
     Dosage: UNK
     Route: 048
     Dates: start: 20111126, end: 20111212
  4. PRADAXA [Interacting]
     Indication: ATRIAL FIBRILLATION
     Dosage: 110 MG, BID
     Route: 048
     Dates: start: 20111122, end: 20111212
  5. PRADAXA [Interacting]
     Dosage: STYRKE: 110 MG
     Route: 048
     Dates: start: 20111122, end: 20111212
  6. METOPROLOL SUCCINATE [Concomitant]
     Indication: CARDIAC DISORDER
     Dosage: 50 MG, BID
     Route: 048
     Dates: start: 20111125
  7. MORFIN ^DAK^ [Concomitant]
     Indication: PAIN
     Dosage: UNK
     Route: 048
     Dates: start: 20111126, end: 20111212
  8. FRUSAMIL [Concomitant]
     Indication: DIURETIC THERAPY
     Dosage: UNK
     Route: 048
     Dates: start: 20111120
  9. DIAMICRON UNO [Concomitant]
     Indication: DIABETES MELLITUS
     Dosage: 30 MG, QD
     Route: 048
     Dates: start: 20111125
  10. FLUCONAZOLE [Suspect]
  11. CEFUROXIM ^FRESENIUS KABI^ [Concomitant]
     Indication: INFECTION
     Dosage: 1500 MG, TID
     Route: 042
     Dates: start: 20111129, end: 20111205
  12. IMOCLONE [Concomitant]
     Indication: INSOMNIA
     Dosage: UNK
     Route: 048
     Dates: start: 20111129, end: 20111213
  13. CENTYL MED KALIUMKLORID [Concomitant]
     Indication: DIURETIC THERAPY
     Dosage: .
     Route: 048
     Dates: start: 20100817
  14. ADALAT [Concomitant]
     Indication: HYPERTENSION
     Dosage: 60 MG, QD
     Route: 048
     Dates: start: 20100817

REACTIONS (5)
  - DRUG INTERACTION [None]
  - GASTROINTESTINAL HAEMORRHAGE [None]
  - HAEMOGLOBIN DECREASED [None]
  - DUODENAL ULCER [None]
  - MELAENA [None]
